FAERS Safety Report 7471091-9 (Version None)
Quarter: 2011Q2

REPORT INFORMATION
  Report Type: 
  Country: None (occurrence: None)
  Receive Date: 20110510
  Receipt Date: 20110328
  Transmission Date: 20111010
  Serious: Yes (Other)
  Sender: FDA-Public Use
  Company Number: US-BAYER-201038401NA

PATIENT
  Age: 30 Year
  Sex: Female

DRUGS (10)
  1. LIPITOR [Concomitant]
     Dosage: 10 MG, UNK
     Route: 048
  2. YASMIN [Suspect]
     Dosage: UNK
     Dates: start: 20060306
  3. YASMIN [Suspect]
  4. LEXAPRO [Concomitant]
     Dosage: 20 MG, UNK
     Route: 048
  5. METFORMIN HCL [Concomitant]
     Dosage: 500 MG, UNK
     Route: 048
  6. YASMIN [Suspect]
     Dosage: UNK
     Dates: start: 20010101
  7. GLUCOPHAGE [Concomitant]
  8. YAZ [Suspect]
     Indication: PRODUCT USED FOR UNKNOWN INDICATION
     Route: 048
     Dates: start: 20050901
  9. ROXICET [Concomitant]
     Route: 048
  10. YASMIN [Suspect]
     Indication: PRODUCT USED FOR UNKNOWN INDICATION
     Dosage: UNK UNK, UNK
     Route: 048
     Dates: start: 20050901

REACTIONS (2)
  - CHOLECYSTECTOMY [None]
  - CHOLECYSTITIS [None]
